FAERS Safety Report 9209686 (Version 1)
Quarter: 2013Q2

REPORT INFORMATION
  Report Type: Spontaneous
  Country: US (occurrence: US)
  Receive Date: 20130404
  Receipt Date: 20130404
  Transmission Date: 20140414
  Serious: No
  Sender: FDA-Public Use
  Company Number: US-BAYER-2013-042660

PATIENT
  Age: 42 Year
  Sex: Male
  Weight: 91 kg

DRUGS (1)
  1. ALEVE CAPLET [Suspect]
     Dosage: 3 DF, ONCE
     Route: 048
     Dates: start: 20130326, end: 20130326

REACTIONS (1)
  - Accidental exposure to product [None]
